FAERS Safety Report 7700384-2 (Version None)
Quarter: 2011Q3

REPORT INFORMATION
  Report Type: 
  Country: None (occurrence: None)
  Receive Date: 20110822
  Receipt Date: 20110818
  Transmission Date: 20111222
  Serious: Yes (Other)
  Sender: FDA-Public Use
  Company Number: DE-BRISTOL-MYERS SQUIBB COMPANY-15715311

PATIENT
  Age: 78 Year
  Sex: Female
  Weight: 53 kg

DRUGS (2)
  1. ONGLYZA [Suspect]
     Indication: TYPE 1 DIABETES MELLITUS
     Dosage: 1 DF: 1 X 1 TABLET
     Route: 048
     Dates: start: 20091215, end: 20110401
  2. METFORMIN HCL [Suspect]

REACTIONS (1)
  - PANCREATITIS [None]
